FAERS Safety Report 17832136 (Version 2)
Quarter: 2024Q2

REPORT INFORMATION
  Report Type: Spontaneous
  Country: US (occurrence: None)
  Receive Date: 20200527
  Receipt Date: 20240526
  Transmission Date: 20240716
  Serious: No
  Sender: FDA-Public Use
  Company Number: US-ROCHE-2569964

PATIENT
  Sex: Female

DRUGS (1)
  1. OCREVUS [Suspect]
     Active Substance: OCRELIZUMAB
     Indication: Multiple sclerosis
     Dosage: ONGOING: NO
     Route: 042
     Dates: start: 202003, end: 20200301

REACTIONS (4)
  - Pharyngitis [Unknown]
  - Asthenia [Unknown]
  - Gait inability [Unknown]
  - Drug ineffective [Unknown]
